FAERS Safety Report 9921450 (Version 1)
Quarter: 2014Q1

REPORT INFORMATION
  Report Type: Spontaneous
  Country: US (occurrence: US)
  Receive Date: 20140225
  Receipt Date: 20140225
  Transmission Date: 20141002
  Serious: Yes (Other)
  Sender: FDA-Public Use
  Company Number: US-ELI_LILLY_AND_COMPANY-US201402006696

PATIENT
  Sex: Female

DRUGS (3)
  1. HUMALOG LISPRO [Suspect]
     Indication: TYPE 2 DIABETES MELLITUS
     Dosage: UNK, UNKNOWN
     Route: 065
  2. INSULIN HUMAN [Suspect]
     Indication: GESTATIONAL DIABETES
     Route: 058
  3. PRENATAL VITAMINS                  /01549301/ [Concomitant]

REACTIONS (6)
  - Placental insufficiency [Recovered/Resolved]
  - Failed induction of labour [Recovered/Resolved]
  - Weight increased [Unknown]
  - Pain in extremity [Not Recovered/Not Resolved]
  - Blood glucose decreased [Unknown]
  - Obesity [Unknown]
